FAERS Safety Report 12384097 (Version 1)
Quarter: 2016Q2

REPORT INFORMATION
  Report Type: Spontaneous
  Country: US (occurrence: None)
  Receive Date: 20160518
  Receipt Date: 20160518
  Transmission Date: 20160815
  Serious: No
  Sender: FDA-Public Use
  Company Number: None

PATIENT
  Age: 46 Year
  Sex: Female
  Weight: 126.55 kg

DRUGS (10)
  1. TRIACINOLON [Concomitant]
  2. PROPRANOLOL [Concomitant]
     Active Substance: PROPRANOLOL\PROPRANOLOL HYDROCHLORIDE
  3. METFORMIN [Concomitant]
     Active Substance: METFORMIN HYDROCHLORIDE
  4. TRULICITY [Concomitant]
     Active Substance: DULAGLUTIDE
  5. GLIPIZIDE. [Concomitant]
     Active Substance: GLIPIZIDE
  6. LYRICA [Concomitant]
     Active Substance: PREGABALIN
  7. TRAMADOL. [Concomitant]
     Active Substance: TRAMADOL
  8. IRON [Concomitant]
     Active Substance: IRON
  9. ZINC [Concomitant]
     Active Substance: ZINC\ZINC CHLORIDE
  10. BYDUREON [Suspect]
     Active Substance: EXENATIDE
     Indication: DIABETES MELLITUS
     Dosage: 1 INJECTION(S) ONCE WEEKLY GIVEN INTO/UNDER THE SKIN
     Route: 058
     Dates: start: 20160428, end: 20160512

REACTIONS (4)
  - Injection site rash [None]
  - Injection site pruritus [None]
  - Injection site mass [None]
  - Injection site swelling [None]

NARRATIVE: CASE EVENT DATE: 20160513
